FAERS Safety Report 8964004 (Version 2)
Quarter: 2013Q1

REPORT INFORMATION
  Report Type: Spontaneous
  Country: US (occurrence: US)
  Receive Date: 20121214
  Receipt Date: 20130110
  Transmission Date: 20140127
  Serious: Yes (Other)
  Sender: FDA-Public Use
  Company Number: US-JNJFOC-20121204695

PATIENT
  Sex: Female
  Weight: 102.06 kg

DRUGS (5)
  1. TRAMADOL [Suspect]
     Indication: PAIN
     Dosage: AS NEEDED
     Route: 048
  2. FLEXERIL [Suspect]
     Indication: PAIN
     Dosage: AS NEEDED
     Route: 048
  3. LUNESTA [Concomitant]
     Indication: INSOMNIA
     Dosage: AT NIGHT
     Route: 048
  4. MELOXICAM [Concomitant]
     Indication: ANTIINFLAMMATORY THERAPY
     Dosage: ONCE DAILY
     Route: 048
  5. LEXAPRO [Concomitant]
     Indication: DEPRESSION
     Dosage: ONCE DAILY
     Route: 048

REACTIONS (1)
  - Psoriatic arthropathy [Not Recovered/Not Resolved]
